FAERS Safety Report 7927003 (Version 6)
Quarter: 2014Q2

REPORT INFORMATION
  Report Type: Spontaneous
  Country: US (occurrence: US)
  Receive Date: 20110502
  Receipt Date: 20140401
  Transmission Date: 20141212
  Serious: No
  Sender: FDA-Public Use
  Company Number: US-ASTRAZENECA-2011SE03681

PATIENT
  Age: 64 Year
  Sex: Female
  Weight: 68 kg

DRUGS (21)
  1. NEXIUM [Suspect]
     Indication: GASTROOESOPHAGEAL REFLUX DISEASE
     Route: 048
  2. NEXIUM [Suspect]
     Indication: GASTROOESOPHAGEAL REFLUX DISEASE
     Route: 048
     Dates: start: 20120110
  3. NEXIUM [Suspect]
     Indication: GASTROOESOPHAGEAL REFLUX DISEASE
     Route: 048
     Dates: start: 2008, end: 201308
  4. NEXIUM [Suspect]
     Indication: GASTROOESOPHAGEAL REFLUX DISEASE
     Route: 048
     Dates: start: 2005, end: 20131203
  5. PRILOSEC OTC [Suspect]
     Indication: GASTROOESOPHAGEAL REFLUX DISEASE
     Route: 048
     Dates: start: 20131204
  6. ZANAX [Concomitant]
  7. GLUCOTROL [Concomitant]
  8. INDURAL [Concomitant]
  9. PAIN MEDICATIONS [Concomitant]
  10. VICODIN [Concomitant]
     Indication: PAIN
  11. FLEXERIL [Concomitant]
     Indication: MUSCULOSKELETAL DISCOMFORT
     Route: 048
     Dates: start: 1997
  12. FLEXERIL [Concomitant]
     Indication: FIBROMYALGIA
     Route: 048
     Dates: start: 1997
  13. FLEXERIL [Concomitant]
     Indication: SCIATICA
     Route: 048
     Dates: start: 1997
  14. PROPRANOLOL [Concomitant]
     Indication: MIGRAINE
     Route: 048
     Dates: start: 1997
  15. GLIPIZIDE ER [Concomitant]
     Indication: DIABETES MELLITUS
     Route: 048
     Dates: start: 2012
  16. GLIPIZIDE ER [Concomitant]
     Indication: BLOOD GLUCOSE ABNORMAL
     Route: 048
     Dates: start: 2012
  17. METFORMIN [Concomitant]
     Indication: DIABETES MELLITUS
     Route: 048
     Dates: start: 2010
  18. METFORMIN [Concomitant]
     Indication: BLOOD GLUCOSE ABNORMAL
     Route: 048
     Dates: start: 2010
  19. TRAMADOL [Concomitant]
     Indication: PAIN
  20. ALPRAZOLAM [Concomitant]
     Indication: NEURALGIA
     Route: 048
     Dates: start: 2003
  21. NORCO [Concomitant]
     Indication: PAIN
     Dosage: 7.5-325MG PRN
     Route: 048
     Dates: start: 2006

REACTIONS (16)
  - Drug dose omission [Not Recovered/Not Resolved]
  - Drug effect incomplete [Not Recovered/Not Resolved]
  - Diabetes mellitus [Not Recovered/Not Resolved]
  - Gastrooesophageal reflux disease [Not Recovered/Not Resolved]
  - Influenza [Unknown]
  - Oropharyngeal pain [Unknown]
  - Limb injury [Unknown]
  - Tremor [Unknown]
  - Chest discomfort [Unknown]
  - Osteoarthritis [Not Recovered/Not Resolved]
  - Sciatica [Not Recovered/Not Resolved]
  - Fibromyalgia [Not Recovered/Not Resolved]
  - Dyspepsia [Not Recovered/Not Resolved]
  - Chest discomfort [Not Recovered/Not Resolved]
  - Memory impairment [Not Recovered/Not Resolved]
  - Malaise [Not Recovered/Not Resolved]
